FAERS Safety Report 16580079 (Version 1)
Quarter: 2019Q3

REPORT INFORMATION
  Report Type: Spontaneous
  Country: FR (occurrence: FR)
  Receive Date: 20190716
  Receipt Date: 20190716
  Transmission Date: 20191004
  Serious: Yes (Hospitalization)
  Sender: FDA-Public Use
  Company Number: FR-009507513-1907FRA005405

PATIENT
  Age: 61 Year
  Sex: Male
  Weight: 83.6 kg

DRUGS (9)
  1. VYXEOS [Suspect]
     Active Substance: CYTARABINE\DAUNORUBICIN
     Indication: ACUTE MYELOID LEUKAEMIA
     Dosage: 86/195 MG PERFUSION OF 90MIN AT D1, D3, D5
     Route: 042
     Dates: start: 20190524, end: 20190528
  2. CRESTOR [Concomitant]
     Active Substance: ROSUVASTATIN CALCIUM
     Indication: HYPERCHOLESTEROLAEMIA
     Route: 048
     Dates: end: 20190522
  3. NOXAFIL [Suspect]
     Active Substance: POSACONAZOLE
     Indication: FUNGAL INFECTION
     Dosage: 3-0-0
     Route: 048
     Dates: start: 20190528, end: 20190621
  4. PIPERACILLIN AND TAZOBACTAM [Suspect]
     Active Substance: PIPERACILLIN SODIUM\TAZOBACTAM SODIUM
     Indication: INFECTION
     Route: 042
     Dates: start: 20190526, end: 20190621
  5. ATORVASTATIN [Suspect]
     Active Substance: ATORVASTATIN
     Indication: HYPERCHOLESTEROLAEMIA
     Dosage: 0-0-1
     Route: 048
     Dates: start: 20190522, end: 20190619
  6. VALACYCLOVIR HYDROCHLORIDE. [Suspect]
     Active Substance: VALACYCLOVIR HYDROCHLORIDE
     Indication: ANTIVIRAL TREATMENT
     Dosage: 1-0-1; 1000 MG QD
     Route: 048
     Dates: start: 20190523
  7. FLUCONAZOLE. [Suspect]
     Active Substance: FLUCONAZOLE
     Indication: FUNGAL INFECTION
     Dosage: 2-0-0
     Route: 048
     Dates: start: 20190524, end: 20190527
  8. EXJADE [Suspect]
     Active Substance: DEFERASIROX
     Indication: IRON OVERLOAD
     Dosage: 1-0-1
     Route: 048
     Dates: end: 20190525
  9. EXJADE [Suspect]
     Active Substance: DEFERASIROX
     Dosage: 1-0-1
     Route: 048
     Dates: start: 20190606, end: 20190616

REACTIONS (3)
  - Cholestasis [Recovering/Resolving]
  - Condition aggravated [Recovering/Resolving]
  - Hepatocellular injury [Recovering/Resolving]

NARRATIVE: CASE EVENT DATE: 20190530
